FAERS Safety Report 23191360 (Version 2)
Quarter: 2025Q1

REPORT INFORMATION
  Report Type: Report from Study
  Country: JP (occurrence: JP)
  Receive Date: 20231116
  Receipt Date: 20250107
  Transmission Date: 20250409
  Serious: Yes (Hospitalization, Other)
  Sender: RANBAXY
  Company Number: JP-SUN PHARMACEUTICAL INDUSTRIES LTD-2023RR-417980

PATIENT
  Age: 32 Year
  Sex: Female

DRUGS (2)
  1. ACETAMINOPHEN [Suspect]
     Active Substance: ACETAMINOPHEN
     Indication: Product used for unknown indication
     Route: 065
  2. PROPYPHENAZONE [Suspect]
     Active Substance: PROPYPHENAZONE
     Indication: Stevens-Johnson syndrome
     Route: 065

REACTIONS (2)
  - Stevens-Johnson syndrome [Unknown]
  - Lymphocyte stimulation test positive [Unknown]
